FAERS Safety Report 6643712-1 (Version None)
Quarter: 2010Q1

REPORT INFORMATION
  Report Type: 
  Country: None (occurrence: None)
  Receive Date: 20100322
  Receipt Date: 20100311
  Transmission Date: 20100710
  Serious: No
  Sender: FDA-Public Use
  Company Number: US-BIOGENIDEC-2010BI007399

PATIENT
  Age: 46 Year
  Sex: Female
  Weight: 72 kg

DRUGS (2)
  1. TYSABRI [Suspect]
     Indication: MULTIPLE SCLEROSIS
     Route: 042
     Dates: start: 20081017, end: 20100311
  2. TOPAMAX [Concomitant]
     Indication: MIGRAINE

REACTIONS (3)
  - ABDOMINAL PAIN UPPER [None]
  - NEPHROLITHIASIS [None]
  - SPLEEN DISORDER [None]
